FAERS Safety Report 6698592-5 (Version None)
Quarter: 2010Q2

REPORT INFORMATION
  Report Type: 
  Country: None (occurrence: None)
  Receive Date: 20100427
  Receipt Date: 20100421
  Transmission Date: 20101027
  Serious: Yes (Life-Threatening, Hospitalization)
  Sender: FDA-Public Use
  Company Number: US-PFIZER INC-2009237935

PATIENT
  Sex: Male
  Weight: 74.83 kg

DRUGS (14)
  1. AMLODIPINE BESYLATE AND ATORVASTATIN CALCIUM [Suspect]
     Indication: HYPERTENSION
     Dosage: 10 MG/20 MG, 1X/DAY
     Route: 048
     Dates: start: 20080915
  2. AMLODIPINE BESYLATE AND ATORVASTATIN CALCIUM [Suspect]
     Indication: HYPERLIPIDAEMIA
  3. ATACAND [Suspect]
     Indication: HYPERTENSION
     Dosage: 16 MG, 1X/DAY
     Route: 048
     Dates: start: 20070920, end: 20081029
  4. ATENOLOL [Concomitant]
     Dosage: UNK
     Dates: start: 20060401
  5. ALLOPURINOL [Concomitant]
     Dosage: UNK
  6. CLONAZEPAM [Concomitant]
     Dosage: UNK
     Dates: start: 20060401
  7. ZANTAC [Concomitant]
     Dosage: UNK
     Dates: start: 20070919
  8. INDAPAMIDE [Concomitant]
     Dosage: UNK
     Dates: start: 20071004
  9. CALCIUM [Concomitant]
     Dosage: UNK
     Dates: start: 20071119
  10. FLOMAX [Concomitant]
     Dosage: UNK
     Dates: start: 20080811
  11. DARVOCET-N 100 [Concomitant]
     Dosage: UNK
  12. TRIAMCINOLONE [Concomitant]
     Dosage: UNK
  13. RANITIDINE [Concomitant]
     Dosage: UNK
  14. GALENIC /CALCIUM/VITAMIN D/ [Concomitant]
     Dosage: UNK

REACTIONS (2)
  - CARDIAC FAILURE CONGESTIVE [None]
  - RENAL FAILURE [None]
